FAERS Safety Report 6329483-7 (Version None)
Quarter: 2009Q3

REPORT INFORMATION
  Report Type: 
  Country: None (occurrence: None)
  Receive Date: 20090826
  Receipt Date: 20090819
  Transmission Date: 20100115
  Serious: Yes (Hospitalization)
  Sender: FDA-Public Use
  Company Number: GB-ELI_LILLY_AND_COMPANY-GB200907004373

PATIENT
  Sex: Female
  Weight: 41 kg

DRUGS (1)
  1. HUMALOG MIX 75/25 [Suspect]
     Dosage: UNK, UNKNOWN
     Route: 065

REACTIONS (4)
  - DIABETIC KETOACIDOSIS [None]
  - MALAISE [None]
  - OROPHARYNGEAL PAIN [None]
  - VOMITING [None]
